FAERS Safety Report 11536100 (Version 1)
Quarter: 2015Q3

REPORT INFORMATION
  Report Type: Spontaneous
  Country: FR (occurrence: FR)
  Receive Date: 20150922
  Receipt Date: 20150922
  Transmission Date: 20151125
  Serious: Yes (Life-Threatening, Hospitalization)
  Sender: FDA-Public Use
  Company Number: FR-SA-2015SA143237

PATIENT
  Age: 57 Year
  Sex: Female

DRUGS (14)
  1. INEXIUM [Concomitant]
     Active Substance: ESOMEPRAZOLE
  2. DIFFU  K [Concomitant]
     Active Substance: POTASSIUM CHLORIDE
  3. ADROVANCE [Concomitant]
     Active Substance: ALENDRONATE SODIUM\CHOLECALCIFEROL
  4. FLUOXETINE [Concomitant]
     Active Substance: FLUOXETINE\FLUOXETINE HYDROCHLORIDE
  5. METHOTREXATE [Concomitant]
     Active Substance: METHOTREXATE
     Dates: start: 2003, end: 2003
  6. SERETIDE [Concomitant]
     Active Substance: FLUTICASONE FUROATE\SALMETEROL XINAFOATE
  7. CORTANCYL [Concomitant]
     Active Substance: PREDNISONE
  8. MEDIATOR [Concomitant]
     Active Substance: BENFLUOREX
     Dosage: STRENGTH: 150 MG
     Dates: start: 1998, end: 1998
  9. ISOMERIDE [Concomitant]
     Active Substance: DEXFENFLURAMINE
     Dosage: 15 MG
     Dates: start: 1998, end: 1998
  10. ENBREL [Concomitant]
     Active Substance: ETANERCEPT
     Dates: start: 2003, end: 2008
  11. ARAVA [Suspect]
     Active Substance: LEFLUNOMIDE
     Route: 048
     Dates: start: 201503, end: 201504
  12. LEVOTHYROX [Concomitant]
     Active Substance: LEVOTHYROXINE
  13. ARAVA [Suspect]
     Active Substance: LEFLUNOMIDE
     Route: 048
     Dates: start: 2006, end: 2014
  14. RITUXIMAB [Concomitant]
     Active Substance: RITUXIMAB
     Dates: start: 2003, end: 2008

REACTIONS (1)
  - Pulmonary arterial hypertension [Not Recovered/Not Resolved]

NARRATIVE: CASE EVENT DATE: 201504
